FAERS Safety Report 12340734 (Version 1)
Quarter: 2016Q2

REPORT INFORMATION
  Report Type: Spontaneous
  Country: ES (occurrence: ES)
  Receive Date: 20160506
  Receipt Date: 20160506
  Transmission Date: 20160815
  Serious: Yes (Other)
  Sender: FDA-Public Use
  Company Number: ES-ASTRAZENECA-2016SE48381

PATIENT
  Age: 79 Year
  Sex: Female

DRUGS (7)
  1. LANSOPRAZOLE. [Concomitant]
     Active Substance: LANSOPRAZOLE
     Indication: PROPHYLAXIS
     Route: 048
     Dates: start: 20150701
  2. ATROVENT [Suspect]
     Active Substance: IPRATROPIUM BROMIDE
     Indication: BRONCHITIS
     Dosage: MONODOSIS 250 MCG/2 ML NEBULISER SOLUTION, 20 AMPOULES OF 2 ML
     Route: 055
     Dates: start: 20160208, end: 20160209
  3. EZETROL [Concomitant]
     Active Substance: EZETIMIBE
     Route: 048
     Dates: start: 20150601
  4. ADIRO [Concomitant]
     Active Substance: ASPIRIN
     Route: 048
     Dates: start: 20100101
  5. PULMICORT TURBUHALER [Suspect]
     Active Substance: BUDESONIDE
     Indication: BRONCHITIS
     Dosage: 0.25 MG/ML NEBULISER SUSPENSION, 5 AMPOULES OF 2ML
     Route: 055
     Dates: start: 20160208, end: 20160209
  6. SALBUTAMOL [Suspect]
     Active Substance: ALBUTEROL
     Indication: BRONCHITIS
     Route: 055
     Dates: start: 20160208, end: 20160209
  7. TRIGON [Suspect]
     Active Substance: TRIAMCINOLONE ACETONIDE
     Indication: BACK PAIN
     Dosage: 40 MG/ML INJECTABLE SUSPENSION, 1 AMPOULE OF 1 ML
     Route: 008
     Dates: start: 20160222, end: 20160222

REACTIONS (4)
  - Condition aggravated [Unknown]
  - Tremor [Recovered/Resolved]
  - Hypertensive crisis [Recovered/Resolved]
  - Hypertension [Unknown]

NARRATIVE: CASE EVENT DATE: 201602
